FAERS Safety Report 16066575 (Version 1)
Quarter: 2019Q1

REPORT INFORMATION
  Report Type: Spontaneous
  Country: US (occurrence: US)
  Receive Date: 20190313
  Receipt Date: 20190313
  Transmission Date: 20190418
  Serious: Yes (Hospitalization)
  Sender: FDA-Public Use
  Company Number: US-ASTRAZENECA-2019SE36598

PATIENT
  Sex: Female
  Weight: .9 kg

DRUGS (8)
  1. ACETAMINOPHEN. [Suspect]
     Active Substance: ACETAMINOPHEN
     Route: 064
  2. BUPRENORPHINE. [Suspect]
     Active Substance: BUPRENORPHINE
     Route: 064
  3. PRENATAL VITAMINS [Suspect]
     Active Substance: VITAMINS
     Route: 064
  4. METHAMPHETAMINE [Suspect]
     Active Substance: METHAMPHETAMINE
  5. FENTANYL. [Suspect]
     Active Substance: FENTANYL
     Route: 064
  6. AMPHETAMINE [Suspect]
     Active Substance: AMPHETAMINE
     Route: 064
  7. QUETIAPINE. [Suspect]
     Active Substance: QUETIAPINE
     Route: 064
  8. ACETYLSALICYLIC ACID [Suspect]
     Active Substance: ASPIRIN
     Route: 064

REACTIONS (4)
  - Bradycardia foetal [Unknown]
  - Anaemia neonatal [Unknown]
  - Premature baby [Unknown]
  - Coagulation disorder neonatal [Recovering/Resolving]
